FAERS Safety Report 9285748 (Version 1)
Quarter: 2013Q2

REPORT INFORMATION
  Report Type: Spontaneous
  Country: US (occurrence: None)
  Receive Date: 20130510
  Receipt Date: 20130510
  Transmission Date: 20140414
  Serious: Yes (Other)
  Sender: FDA-Public Use
  Company Number: None

PATIENT
  Age: 45 Year
  Sex: Female
  Weight: 74.84 kg

DRUGS (1)
  1. COPAXONE [Suspect]
     Indication: MULTIPLE SCLEROSIS
     Route: 058
     Dates: start: 20130326, end: 20130404

REACTIONS (6)
  - Arthralgia [None]
  - Injection site swelling [None]
  - Injection site pain [None]
  - Insomnia [None]
  - Crying [None]
  - Haemorrhage subcutaneous [None]
